FAERS Safety Report 21004219 (Version 2)
Quarter: 2022Q3

REPORT INFORMATION
  Report Type: Spontaneous
  Country: US (occurrence: None)
  Receive Date: 20220624
  Receipt Date: 20220725
  Transmission Date: 20221026
  Serious: Yes (Hospitalization)
  Sender: FDA-Public Use
  Company Number: US-ROCHE-3123747

PATIENT
  Sex: Female

DRUGS (5)
  1. ACTEMRA [Suspect]
     Active Substance: TOCILIZUMAB
     Indication: Giant cell arteritis
     Dosage: 162MG 0.9ML
     Route: 058
     Dates: start: 20200219
  2. ACTEMRA [Suspect]
     Active Substance: TOCILIZUMAB
  3. ATOVAQUONE [Concomitant]
     Active Substance: ATOVAQUONE
  4. PREDNISONE [Concomitant]
     Active Substance: PREDNISONE
  5. PRILOSEC [Concomitant]
     Active Substance: OMEPRAZOLE MAGNESIUM

REACTIONS (2)
  - Infection [Not Recovered/Not Resolved]
  - Product dose omission issue [Unknown]
